FAERS Safety Report 17923846 (Version 1)
Quarter: 2020Q2

REPORT INFORMATION
  Report Type: Spontaneous
  Country: US (occurrence: US)
  Receive Date: 20200622
  Receipt Date: 20200622
  Transmission Date: 20200714
  Serious: Yes (Hospitalization)
  Sender: FDA-Public Use
  Company Number: None

PATIENT
  Age: 88 Year
  Sex: Male
  Weight: 97.65 kg

DRUGS (10)
  1. FENTANYL. [Concomitant]
     Active Substance: FENTANYL
  2. CLOPIDOGREL [Concomitant]
     Active Substance: CLOPIDOGREL BISULFATE
  3. ELIQUIS [Concomitant]
     Active Substance: APIXABAN
  4. FENOFIBRATE. [Concomitant]
     Active Substance: FENOFIBRATE
  5. BUMEX [Concomitant]
     Active Substance: BUMETANIDE
  6. PREDNISONE. [Concomitant]
     Active Substance: PREDNISONE
  7. METOPROLOL. [Concomitant]
     Active Substance: METOPROLOL
  8. TRAMADOL. [Concomitant]
     Active Substance: TRAMADOL
  9. ABIRATERONE. [Suspect]
     Active Substance: ABIRATERONE ACETATE
     Indication: PROSTATE CANCER
     Route: 048
     Dates: start: 20200327, end: 20200522
  10. ALLOPURINOL. [Concomitant]
     Active Substance: ALLOPURINOL

REACTIONS (1)
  - Ammonia increased [None]

NARRATIVE: CASE EVENT DATE: 20200523
